FAERS Safety Report 14851571 (Version 6)
Quarter: 2019Q1

REPORT INFORMATION
  Report Type: Report from Study
  Country: None (occurrence: US)
  Receive Date: 20180507
  Receipt Date: 20190308
  Transmission Date: 20190417
  Serious: Yes (Other)
  Sender: FDA-Public Use
  Company Number: US-ABBVIE-17K-163-1958725-00

PATIENT
  Sex: Male

DRUGS (3)
  1. HUMIRA [Suspect]
     Active Substance: ADALIMUMAB
     Route: 058
  2. HUMIRA [Suspect]
     Active Substance: ADALIMUMAB
     Route: 058
  3. HUMIRA [Suspect]
     Active Substance: ADALIMUMAB
     Indication: ANKYLOSING SPONDYLITIS
     Route: 058

REACTIONS (42)
  - Weight decreased [Unknown]
  - Somnolence [Unknown]
  - Spinal deformity [Unknown]
  - Muscle strain [Recovering/Resolving]
  - Influenza like illness [Unknown]
  - Hepatic cirrhosis [Unknown]
  - Loss of consciousness [Unknown]
  - Adverse drug reaction [Unknown]
  - Pancreatogenous diabetes [Unknown]
  - Pancreatic disorder [Unknown]
  - Bone pain [Unknown]
  - Drug effect incomplete [Unknown]
  - Platelet count decreased [Unknown]
  - Hepatitis [Unknown]
  - Malaise [Unknown]
  - Splenomegaly [Unknown]
  - Prostatomegaly [Unknown]
  - Inflammation [Unknown]
  - Lymphadenopathy [Unknown]
  - Tympanic membrane hyperaemia [Unknown]
  - Hepatic steatosis [Unknown]
  - Pain [Unknown]
  - White blood cell count decreased [Unknown]
  - Back pain [Recovering/Resolving]
  - Headache [Unknown]
  - Blood glucose decreased [Unknown]
  - Diabetic neuropathy [Unknown]
  - Dementia [Unknown]
  - Sinusitis [Unknown]
  - Hypersensitivity [Unknown]
  - Hepatic function abnormal [Unknown]
  - Skin discolouration [Unknown]
  - Throat tightness [Unknown]
  - Platelet count decreased [Recovered/Resolved]
  - Fatigue [Unknown]
  - Head discomfort [Unknown]
  - Vasodilatation [Unknown]
  - Spinal deformity [Recovering/Resolving]
  - Ammonia abnormal [Unknown]
  - Depression [Unknown]
  - Ankylosing spondylitis [Unknown]
  - Muscle tightness [Unknown]

NARRATIVE: CASE EVENT DATE: 2016
